FAERS Safety Report 5516731-6 (Version None)
Quarter: 2007Q4

REPORT INFORMATION
  Report Type: 
  Country: None (occurrence: None)
  Receive Date: 20071114
  Receipt Date: 20070501
  Transmission Date: 20080405
  Serious: No
  Sender: FDA-Public Use
  Company Number: A0649239A

PATIENT
  Age: 50 Year

DRUGS (2)
  1. COMMIT [Suspect]
     Dates: start: 20070413
  2. COMMIT [Suspect]
     Dates: start: 20070413

REACTIONS (2)
  - MOUTH ULCERATION [None]
  - WEIGHT INCREASED [None]
